FAERS Safety Report 14650222 (Version 1)
Quarter: 2018Q1

REPORT INFORMATION
  Report Type: Report from Study
  Country: CA (occurrence: CA)
  Receive Date: 20180316
  Receipt Date: 20180316
  Transmission Date: 20180509
  Serious: Yes (Other)
  Sender: FDA-Public Use
  Company Number: CA-BIOGEN-2018BI00539201

PATIENT
  Age: 62 Year
  Sex: Female

DRUGS (2)
  1. TECFIDERA [Suspect]
     Active Substance: DIMETHYL FUMARATE
     Route: 048
  2. TECFIDERA [Suspect]
     Active Substance: DIMETHYL FUMARATE
     Indication: MULTIPLE SCLEROSIS
     Dosage: STARTING DOSE
     Route: 048
     Dates: start: 20180305

REACTIONS (9)
  - Prescribed underdose [Recovered/Resolved]
  - Headache [Recovered/Resolved]
  - Generalised oedema [Recovered/Resolved]
  - Oedema peripheral [Recovered/Resolved]
  - Flushing [Recovered/Resolved]
  - Pulmonary oedema [Recovered/Resolved]
  - Rash generalised [Recovered/Resolved]
  - Face oedema [Recovered/Resolved]
  - Pruritus generalised [Recovered/Resolved]

NARRATIVE: CASE EVENT DATE: 20180305
